FAERS Safety Report 7888276-X (Version None)
Quarter: 2011Q4

REPORT INFORMATION
  Report Type: 
  Country: None (occurrence: None)
  Receive Date: 20111103
  Receipt Date: 20111031
  Transmission Date: 20120403
  Serious: Yes (Death, Hospitalization)
  Sender: FDA-Public Use
  Company Number: AU-B.I. PHARMACEUTICALS,INC./RIDGEFIELD-2011-AU-01930AU

PATIENT
  Sex: Female
  Weight: 72 kg

DRUGS (9)
  1. LASIX [Concomitant]
  2. PRADAXA [Suspect]
     Indication: PROPHYLAXIS
     Dosage: 220 MG
     Dates: start: 20110630, end: 20111015
  3. ALDACTONE [Concomitant]
     Dates: start: 20050718
  4. LIPITOR [Concomitant]
  5. ASPIRIN [Concomitant]
  6. LOPID [Concomitant]
  7. CARVEDILOL [Concomitant]
     Dosage: 50 MG
  8. MONODUR [Concomitant]
  9. LEVOTHYROXINE SODIUM [Concomitant]

REACTIONS (2)
  - GASTROINTESTINAL HAEMORRHAGE [None]
  - CEREBROVASCULAR ACCIDENT [None]
